FAERS Safety Report 6561267-7 (Version None)
Quarter: 2010Q1

REPORT INFORMATION
  Report Type: 
  Country: None (occurrence: None)
  Receive Date: 20100130
  Receipt Date: 20091012
  Transmission Date: 20100710
  Serious: No
  Sender: FDA-Public Use
  Company Number: US-ABBOTT-09P-163-0602572-00

PATIENT
  Sex: Male
  Weight: 62.652 kg

DRUGS (1)
  1. HUMIRA [Suspect]
     Indication: CROHN'S DISEASE
     Dates: start: 20070404, end: 20090101

REACTIONS (2)
  - INFLUENZA LIKE ILLNESS [None]
  - NASOPHARYNGITIS [None]
